FAERS Safety Report 14376104 (Version 2)
Quarter: 2018Q4

REPORT INFORMATION
  Report Type: Spontaneous
  Country: CA (occurrence: CA)
  Receive Date: 20180111
  Receipt Date: 20181005
  Transmission Date: 20190204
  Serious: Yes (Other)
  Sender: FDA-Public Use
  Company Number: CA-AMGEN-CANSP2017190307

PATIENT
  Age: 81 Year
  Sex: Female
  Weight: 63.5 kg

DRUGS (13)
  1. ALLOPURINOL. [Concomitant]
     Active Substance: ALLOPURINOL
     Dosage: 300 MG, UNK
  2. GABAPENTIN. [Concomitant]
     Active Substance: GABAPENTIN
  3. PROLIA [Suspect]
     Active Substance: DENOSUMAB
     Indication: OSTEOPOROSIS POSTMENOPAUSAL
     Dosage: 60 MG, Q6MO
     Route: 058
     Dates: start: 20131010, end: 20171008
  4. ZYLOPRIM [Concomitant]
     Active Substance: ALLOPURINOL
  5. VITAMIN C [Concomitant]
     Active Substance: ASCORBIC ACID
  6. VITAMIN D [Concomitant]
     Active Substance: CHOLECALCIFEROL
  7. PLENDIL [Concomitant]
     Active Substance: FELODIPINE
     Dosage: 7.5 MG, UNK
  8. PANTO [Concomitant]
     Active Substance: PANTOPRAZOLE SODIUM
  9. GLUCOSAMINE [Concomitant]
     Active Substance: GLUCOSAMINE
  10. MAGNESIUM [Concomitant]
     Active Substance: MAGNESIUM
  11. FOSINOPRIL [Concomitant]
     Active Substance: FOSINOPRIL
     Dosage: 10 MG, UNK
  12. HYDROCHLOROTHIAZIDE. [Concomitant]
     Active Substance: HYDROCHLOROTHIAZIDE
     Dosage: 25 MG, UNK
  13. VOLTAREN [Concomitant]
     Active Substance: DICLOFENAC SODIUM

REACTIONS (14)
  - Hypoaesthesia [Recovered/Resolved]
  - Fall [Unknown]
  - Paraesthesia [Recovered/Resolved]
  - Pain in jaw [Recovered/Resolved]
  - Diarrhoea [Recovered/Resolved]
  - Groin pain [Unknown]
  - Cystitis [Recovered/Resolved]
  - Pain in extremity [Recovered/Resolved]
  - Muscle disorder [Unknown]
  - Dry skin [Recovered/Resolved]
  - Arthralgia [Recovered/Resolved]
  - Erythema [Recovered/Resolved]
  - Skin exfoliation [Recovered/Resolved]
  - Endometrial adenocarcinoma [Recovered/Resolved]

NARRATIVE: CASE EVENT DATE: 2015
